FAERS Safety Report 19957316 (Version 1)
Quarter: 2021Q4

REPORT INFORMATION
  Report Type: Spontaneous
  Country: US (occurrence: US)
  Receive Date: 20211015
  Receipt Date: 20211015
  Transmission Date: 20220303
  Serious: No
  Sender: FDA-Public Use
  Company Number: US-AMGEN-USASP2021156102

PATIENT
  Sex: Female
  Weight: 66.5 kg

DRUGS (1)
  1. MVASI [Suspect]
     Active Substance: BEVACIZUMAB-AWWB
     Indication: Peritoneal mesothelioma malignant
     Dosage: UNK
     Route: 065

REACTIONS (1)
  - Surgery [Unknown]
